FAERS Safety Report 8782191 (Version 1)
Quarter: 2012Q4

REPORT INFORMATION
  Report Type: 
  Country: US (occurrence: US)
  Receive Date: 20120914
  Receipt Date: 20120914
  Transmission Date: 20130627
  Serious: Yes (Other)
  Sender: FDA-Public Use
  Company Number: US-VERTEX PHARMACEUTICAL INC.-AE-2012-011630

PATIENT

DRUGS (18)
  1. INCIVEK [Suspect]
     Indication: HEPATITIS C
     Dosage: 1125 mg, bid
     Route: 048
     Dates: start: 20120516, end: 20120808
  2. RIBAVIRIN [Concomitant]
     Indication: HEPATITIS C
     Dosage: 600 mg, UNK
     Route: 048
     Dates: start: 20120516, end: 20120815
  3. RIBAVIRIN [Concomitant]
     Dosage: 600 mg, UNK
     Route: 048
     Dates: start: 20120625, end: 20120705
  4. RIBAVIRIN [Concomitant]
     Dosage: 600 mg, UNK
     Route: 048
     Dates: start: 20120715
  5. RIBAVIRIN [Concomitant]
     Dosage: 400 mg, bid
     Route: 048
     Dates: start: 20120516, end: 20120803
  6. PEGASYS [Concomitant]
     Indication: HEPATITIS C
     Dosage: 180, 1x/week
     Route: 058
     Dates: start: 20120516, end: 20120815
  7. LEXAPRO [Concomitant]
     Indication: DEPRESSION
     Dosage: 20 mg, UNK
  8. PHENERGAN [Concomitant]
     Indication: NAUSEA
  9. ZOFRAN [Concomitant]
     Indication: NAUSEA
  10. MULTI-VITAMIN [Concomitant]
     Indication: MEDICAL DIET
     Route: 048
  11. B COMPLEX [Concomitant]
     Indication: MEDICAL DIET
     Route: 048
  12. SLOW RELEASE IRON [Concomitant]
     Route: 048
  13. FIORINAL [Concomitant]
     Indication: MIGRAINE
  14. KLONOPIN [Concomitant]
     Indication: ANXIETY
     Route: 048
  15. BENADRYL [Concomitant]
     Route: 048
  16. TUMS [Concomitant]
     Indication: DYSPEPSIA
     Route: 048
  17. IBUPROFEN [Concomitant]
     Indication: PAIN
  18. XANAX [Concomitant]
     Dosage: UNK

REACTIONS (15)
  - Anaemia [Not Recovered/Not Resolved]
  - Tachycardia [Not Recovered/Not Resolved]
  - Infection [None]
  - Migraine [Not Recovered/Not Resolved]
  - Eye swelling [Not Recovered/Not Resolved]
  - Insomnia [Not Recovered/Not Resolved]
  - Oropharyngeal pain [Unknown]
  - Pain [Not Recovered/Not Resolved]
  - Eye pruritus [Not Recovered/Not Resolved]
  - Alopecia [Not Recovered/Not Resolved]
  - Pyrexia [Not Recovered/Not Resolved]
  - Skin ulcer [Not Recovered/Not Resolved]
  - Oral mucosal blistering [Unknown]
  - Rash erythematous [Not Recovered/Not Resolved]
  - Pruritus generalised [Unknown]
